FAERS Safety Report 4486035-1 (Version None)
Quarter: 2004Q4

REPORT INFORMATION
  Report Type: 
  Country: None (occurrence: None)
  Receive Date: 20041022
  Receipt Date: 20041008
  Transmission Date: 20050328
  Serious: Yes (Death, Hospitalization)
  Sender: FDA-Public Use
  Company Number: 04-01-0090

PATIENT
  Age: 90 Year
  Sex: Female
  Weight: 82 kg

DRUGS (7)
  1. FLUOXETINE [Suspect]
     Dosage: 20MG OD ORAL
     Route: 048
  2. ASPIRIN [Suspect]
     Dosage: 75MG OD ORAL
     Route: 048
  3. MELOXICAM [Suspect]
     Dosage: 30MG ORAL
     Route: 048
     Dates: end: 20040105
  4. PREDNISOLONE [Suspect]
     Dosage: 2.5 ORAL
     Route: 048
  5. BURINEX A [Suspect]
     Dosage: 1 TABLET QD ORAL
     Route: 048
  6. ENALAPRIL [Suspect]
     Dosage: 20MG OD ORAL
     Route: 048
  7. BELLADONNA EXTRACT [Suspect]
     Dosage: 40MG QD

REACTIONS (2)
  - MELAENA [None]
  - SUDDEN DEATH [None]
